FAERS Safety Report 10208647 (Version 1)
Quarter: 2014Q2

REPORT INFORMATION
  Report Type: Spontaneous
  Country: PT (occurrence: PT)
  Receive Date: 20140530
  Receipt Date: 20140530
  Transmission Date: 20141212
  Serious: Yes (Other)
  Sender: FDA-Public Use
  Company Number: PHHY2014PT062136

PATIENT
  Age: 56 Year
  Sex: Male

DRUGS (6)
  1. PREDNISOLONE [Suspect]
     Indication: TEMPORAL ARTERITIS
     Dosage: 80 MG, PER DAY
     Route: 048
  2. PREDNISOLONE [Suspect]
     Dosage: 120 MG, DAILY
  3. PREDNISOLONE [Suspect]
     Dosage: 20 MG, DAILY
  4. WARFARIN [Concomitant]
  5. METHOTREXATE [Concomitant]
     Dosage: 15 MG, WEEKLY
  6. METHOTREXATE [Concomitant]
     Dosage: 8 MG, WEEKLY

REACTIONS (9)
  - Osteonecrosis [Unknown]
  - Platelet count increased [Recovered/Resolved]
  - C-reactive protein increased [Recovered/Resolved]
  - Red blood cell sedimentation rate increased [Recovered/Resolved]
  - General physical health deterioration [Recovered/Resolved]
  - Mental status changes [Recovered/Resolved]
  - Aphasia [Recovered/Resolved]
  - Hemiparesis [Recovered/Resolved]
  - Condition aggravated [Recovered/Resolved]
